FAERS Safety Report 25934725 (Version 1)
Quarter: 2025Q4

REPORT INFORMATION
  Report Type: Spontaneous
  Country: EU (occurrence: EU)
  Receive Date: 20251017
  Receipt Date: 20251017
  Transmission Date: 20260117
  Serious: Yes (Other)
  Sender: RANBAXY
  Company Number: EU-SANDOZ-SDZ2025DE043146

PATIENT
  Sex: Female

DRUGS (6)
  1. ETORICOXIB [Suspect]
     Active Substance: ETORICOXIB
     Indication: Product used for unknown indication
     Dosage: 270 MILLIGRAM, 1/WEEK, 90 MG,2 DAYS PER WEEK
     Route: 065
     Dates: start: 20240409
  2. PANTOPRAZOLE [Suspect]
     Active Substance: PANTOPRAZOLE
     Indication: Product used for unknown indication
     Dosage: 40 MILLIGRAM
     Route: 065
  3. PREGABALIN [Suspect]
     Active Substance: PREGABALIN
     Indication: Product used for unknown indication
     Dosage: 150 MILLIGRAM
     Route: 065
  4. OXYCODONE [Suspect]
     Active Substance: OXYCODONE
     Indication: Product used for unknown indication
     Dosage: 20 MILLIGRAM
     Route: 065
  5. COSENTYX [Suspect]
     Active Substance: SECUKINUMAB
     Indication: Psoriatic arthropathy
     Dosage: 150 MILLIGRAM
     Route: 065
     Dates: start: 20240410
  6. COSENTYX [Suspect]
     Active Substance: SECUKINUMAB
     Dosage: UNK, Q4W
     Route: 065

REACTIONS (1)
  - Cervical dysplasia [Unknown]

NARRATIVE: CASE EVENT DATE: 20240906
